FAERS Safety Report 12328431 (Version 1)
Quarter: 2016Q2

REPORT INFORMATION
  Report Type: Spontaneous
  Country: US (occurrence: US)
  Receive Date: 20160503
  Receipt Date: 20160503
  Transmission Date: 20160815
  Serious: No
  Sender: FDA-Public Use
  Company Number: US-BEH-2014046522

PATIENT
  Sex: Female
  Weight: 81 kg

DRUGS (19)
  1. NOVOLOG [Concomitant]
     Active Substance: INSULIN ASPART
  2. OXYTROL [Concomitant]
     Active Substance: OXYBUTYNIN
  3. CLONAZEPAM. [Concomitant]
     Active Substance: CLONAZEPAM
  4. BENICAR [Concomitant]
     Active Substance: OLMESARTAN MEDOXOMIL
  5. SODIUM CHLORIDE. [Concomitant]
     Active Substance: SODIUM CHLORIDE
  6. HIZENTRA [Suspect]
     Active Substance: HUMAN IMMUNOGLOBULIN G
     Route: 058
  7. ACETAMINOPHEN\HYDROCODONE BITARTRATE [Concomitant]
     Active Substance: ACETAMINOPHEN\HYDROCODONE BITARTRATE
  8. SANCTURA [Concomitant]
     Active Substance: TROSPIUM CHLORIDE
  9. LUNESTA [Concomitant]
     Active Substance: ESZOPICLONE
  10. HIZENTRA [Suspect]
     Active Substance: HUMAN IMMUNOGLOBULIN G
     Route: 058
  11. TYLENOL [Concomitant]
     Active Substance: ACETAMINOPHEN
  12. HIZENTRA [Suspect]
     Active Substance: HUMAN IMMUNOGLOBULIN G
     Dosage: ??-???-2011
     Route: 058
  13. SPIRIVA [Concomitant]
     Active Substance: TIOTROPIUM BROMIDE MONOHYDRATE
  14. DOXYCYCLINE HYCLATE. [Concomitant]
     Active Substance: DOXYCYCLINE HYCLATE
  15. LAMICTAL [Concomitant]
     Active Substance: LAMOTRIGINE
  16. SINGULAIR [Concomitant]
     Active Substance: MONTELUKAST SODIUM
  17. HIZENTRA [Suspect]
     Active Substance: HUMAN IMMUNOGLOBULIN G
     Indication: IMMUNODEFICIENCY COMMON VARIABLE
     Dosage: ??-???-2011
     Route: 058
  18. VITAMIN D [Concomitant]
     Active Substance: CHOLECALCIFEROL
  19. AMITRIPTYLINE HCL [Concomitant]
     Active Substance: AMITRIPTYLINE

REACTIONS (3)
  - Headache [Recovered/Resolved]
  - Vomiting [Recovered/Resolved]
  - Nausea [Recovered/Resolved]
